FAERS Safety Report 19614655 (Version 1)
Quarter: 2021Q3

REPORT INFORMATION
  Report Type: Spontaneous
  Country: US (occurrence: US)
  Receive Date: 20210726
  Receipt Date: 20210726
  Transmission Date: 20211014
  Serious: No
  Sender: FDA-Public Use
  Company Number: None

PATIENT
  Age: 72 Year
  Sex: Male
  Weight: 103 kg

DRUGS (1)
  1. REGADENOSON  (REGADENOSON 0.4MG/5ML INJ, SYRINGE 5ML) [Suspect]
     Active Substance: REGADENOSON
     Indication: CARDIAC STRESS TEST
     Dates: start: 20210603, end: 20210603

REACTIONS (2)
  - Respiratory depression [None]
  - Agitation [None]

NARRATIVE: CASE EVENT DATE: 20210603
